FAERS Safety Report 25728591 (Version 2)
Quarter: 2025Q3

REPORT INFORMATION
  Report Type: Spontaneous
  Country: US (occurrence: US)
  Receive Date: 20250826
  Receipt Date: 20250923
  Transmission Date: 20251021
  Serious: No
  Sender: INSUD PHARMA
  Company Number: US-INSUD PHARMA-2508US06690

PATIENT

DRUGS (2)
  1. TESTOSTERONE [Suspect]
     Active Substance: TESTOSTERONE
     Indication: Androgen deficiency
     Dosage: 2 PUMP ACTUATIONS (40.5 MG/2.5 GM) TOPICALLY ONCE DAILY IN THE MORNING TO THE SHOULDERS AND UPPER AR
     Route: 061
     Dates: start: 202507
  2. TESTOSTERONE [Suspect]
     Active Substance: TESTOSTERONE
     Dosage: 2 DOSAGE FORM, QD
     Route: 061

REACTIONS (5)
  - Anger [Not Recovered/Not Resolved]
  - Fatigue [Not Recovered/Not Resolved]
  - Therapeutic product effect decreased [Not Recovered/Not Resolved]
  - Incorrect dose administered [Unknown]
  - Drug delivery system malfunction [Unknown]

NARRATIVE: CASE EVENT DATE: 20250101
